FAERS Safety Report 9400188 (Version 1)
Quarter: 2013Q2

REPORT INFORMATION
  Report Type: Spontaneous
  Country: US (occurrence: None)
  Receive Date: 20130501
  Receipt Date: 20130501
  Transmission Date: 20140414
  Serious: Yes (Death)
  Sender: FDA-Public Use
  Company Number: UTC-030990

PATIENT
  Age: 81 Year
  Sex: Female
  Weight: 93.64 kg

DRUGS (3)
  1. TYVASO (6 MICROGRAM, AEROSOL FOR INHALATION) (TREPROSTINIL SODIUM) [Suspect]
     Indication: COR PULMONALE CHRONIC
     Dosage: 18-54 MCG (4 IN 1 D)?
     Route: 055
     Dates: start: 20101025
  2. COUMADIN (WARFARIN SODIUM) (UNKNOWN) [Concomitant]
  3. PLAVIX (CLOPIDOGREL) (UNKNOWN) [Concomitant]

REACTIONS (4)
  - Pulmonary arterial hypertension [None]
  - Chronic obstructive pulmonary disease [None]
  - Hypoxia [None]
  - Disease progression [None]
